FAERS Safety Report 8992021 (Version 1)
Quarter: 2012Q4

REPORT INFORMATION
  Report Type: 
  Country: DE (occurrence: DE)
  Receive Date: 20121231
  Receipt Date: 20121231
  Transmission Date: 20130627
  Serious: Yes (Other)
  Sender: FDA-Public Use
  Company Number: PHHY2012DE121294

PATIENT
  Sex: Female

DRUGS (3)
  1. ACLASTA [Suspect]
     Indication: OSTEOPOROSIS
     Dosage: 5 mg, UNK
     Route: 042
     Dates: start: 20121203
  2. VITAMIN D3 [Concomitant]
     Indication: OSTEOPOROSIS
     Dosage: 20000 IU, UNK
  3. CALCIUM [Concomitant]
     Indication: OSTEOPOROSIS
     Dosage: 500 mg, UNK

REACTIONS (4)
  - Arrhythmia [Recovered/Resolved]
  - Bone pain [Recovering/Resolving]
  - Myalgia [Recovering/Resolving]
  - Pyrexia [Recovered/Resolved]
